FAERS Safety Report 21192248 (Version 1)
Quarter: 2022Q3

REPORT INFORMATION
  Report Type: Spontaneous
  Country: US (occurrence: US)
  Receive Date: 20220809
  Receipt Date: 20220809
  Transmission Date: 20221027
  Serious: Yes (Hospitalization)
  Sender: FDA-Public Use
  Company Number: US-BoehringerIngelheim-2022-BI-185981

PATIENT
  Age: 67 Year
  Sex: Male

DRUGS (2)
  1. MIRAPEX ER [Suspect]
     Active Substance: PRAMIPEXOLE DIHYDROCHLORIDE
     Indication: Restless legs syndrome
     Dosage: IN THE EVENING?EXTENDED RELEASE TABLET
     Dates: start: 2012
  2. PRAMIPEXOLE [Concomitant]
     Active Substance: PRAMIPEXOLE
     Indication: Product used for unknown indication
     Dosage: ONLY AS NEEDED MAYBE ONCE A MONTH

REACTIONS (5)
  - Post procedural infection [Recovered/Resolved]
  - Off label use [Unknown]
  - Spinal operation [Unknown]
  - Arthralgia [Unknown]
  - Dyskinesia [Unknown]

NARRATIVE: CASE EVENT DATE: 20120101
